FAERS Safety Report 17683847 (Version 1)
Quarter: 2020Q2

REPORT INFORMATION
  Report Type: Spontaneous
  Country: US (occurrence: US)
  Receive Date: 20200420
  Receipt Date: 20200420
  Transmission Date: 20200714
  Serious: No
  Sender: FDA-Public Use
  Company Number: US-AMGEN-USASP2020062250

PATIENT
  Age: 29 Year
  Sex: Female

DRUGS (1)
  1. PARSABIV [Suspect]
     Active Substance: ETELCALCETIDE HYDROCHLORIDE
     Indication: HYPERPARATHYROIDISM SECONDARY
     Dosage: UNK
     Route: 065
     Dates: start: 20200410

REACTIONS (5)
  - Rhinorrhoea [Recovering/Resolving]
  - Headache [Recovering/Resolving]
  - Lung disorder [Recovering/Resolving]
  - Burning sensation [Recovering/Resolving]
  - Pruritus [Recovering/Resolving]

NARRATIVE: CASE EVENT DATE: 20200413
